FAERS Safety Report 7282937-1 (Version None)
Quarter: 2011Q1

REPORT INFORMATION
  Report Type: 
  Country: None (occurrence: None)
  Receive Date: 20110209
  Receipt Date: 20110128
  Transmission Date: 20110831
  Serious: Yes (Other)
  Sender: FDA-Public Use
  Company Number: CN-SANOFI-AVENTIS-2010SA066164

PATIENT

DRUGS (2)
  1. CAPECITABINE [Suspect]
     Route: 048
  2. OXALIPLATIN [Suspect]
     Route: 041

REACTIONS (6)
  - NEUTROPENIA [None]
  - THROMBOCYTOPENIA [None]
  - ALEUKAEMIC LEUKAEMIA [None]
  - VOMITING [None]
  - ASTHENIA [None]
  - NAUSEA [None]
